FAERS Safety Report 5216319-0 (Version None)
Quarter: 2007Q1

REPORT INFORMATION
  Report Type: 
  Country: None (occurrence: None)
  Receive Date: 20070123
  Receipt Date: 20070111
  Transmission Date: 20070707
  Serious: Yes (Other)
  Sender: FDA-Public Use
  Company Number: IE-PFIZER INC-2007004165

PATIENT
  Age: 76 Year
  Sex: Female

DRUGS (1)
  1. DETRUSITOL XL [Suspect]
     Indication: HYPERTONIC BLADDER

REACTIONS (1)
  - FALL [None]
